FAERS Safety Report 13843614 (Version 2)
Quarter: 2017Q4

REPORT INFORMATION
  Report Type: Spontaneous
  Country: FR (occurrence: FR)
  Receive Date: 20170808
  Receipt Date: 20171031
  Transmission Date: 20180320
  Serious: Yes (Disabling, Other)
  Sender: FDA-Public Use
  Company Number: FR-PFIZER INC-2017333307

PATIENT
  Age: 50 Year
  Sex: Female

DRUGS (3)
  1. CELEBREX [Suspect]
     Active Substance: CELECOXIB
     Indication: PSORIATIC ARTHROPATHY
     Dosage: UNK
     Route: 048
     Dates: start: 201701
  2. COSENTYX [Suspect]
     Active Substance: SECUKINUMAB
     Dosage: UNK, MONTHLY
     Route: 058
     Dates: end: 201706
  3. COSENTYX [Suspect]
     Active Substance: SECUKINUMAB
     Indication: PSORIATIC ARTHROPATHY
     Dosage: UNK, WEEKLY (ON WEEK 0,1,2,3)
     Route: 058
     Dates: start: 201701

REACTIONS (6)
  - Condition aggravated [Recovered/Resolved]
  - Condition aggravated [Not Recovered/Not Resolved]
  - Rhinorrhoea [Recovered/Resolved]
  - Rhinitis [Not Recovered/Not Resolved]
  - Otitis media [Not Recovered/Not Resolved]
  - Deafness bilateral [Not Recovered/Not Resolved]

NARRATIVE: CASE EVENT DATE: 201603
